FAERS Safety Report 23107486 (Version 2)
Quarter: 2024Q1

REPORT INFORMATION
  Report Type: Spontaneous
  Country: ES (occurrence: ES)
  Receive Date: 20231026
  Receipt Date: 20240315
  Transmission Date: 20240410
  Serious: Yes (Other)
  Sender: FDA-Public Use
  Company Number: None

PATIENT
  Age: 95 Year
  Sex: Female

DRUGS (5)
  1. AMOXICILLIN\CLAVULANIC ACID [Suspect]
     Active Substance: AMOXICILLIN\CLAVULANIC ACID
     Indication: Postoperative wound infection
     Route: 048
     Dates: start: 20230906, end: 20230912
  2. FLUTICASONE FUROATE\VILANTEROL TRIFENATATE [Concomitant]
     Active Substance: FLUTICASONE FUROATE\VILANTEROL TRIFENATATE
     Indication: Product used for unknown indication
     Dosage: 92 MCG/22 MCG(UNIDODIS) 30 DOSES
     Route: 055
     Dates: start: 20190606
  3. FUROSEMIDE [Concomitant]
     Active Substance: FUROSEMIDE
     Indication: Product used for unknown indication
     Dosage: FUROSEMIDE UXA EFG , 30 TABLETS
     Route: 048
     Dates: start: 20230502
  4. ASPIRIN [Concomitant]
     Active Substance: ASPIRIN
     Indication: Product used for unknown indication
     Dosage: EFG, 30 TABLETS (PVC-ALUMINUM)
     Route: 048
     Dates: start: 20170411
  5. NEBIVOLOL CINFA [Concomitant]
     Indication: Product used for unknown indication
     Dosage: EFG, 28 TABLETS
     Route: 048
     Dates: start: 20220510

REACTIONS (1)
  - Toxic skin eruption [Recovering/Resolving]

NARRATIVE: CASE EVENT DATE: 20230914
